FAERS Safety Report 15096475 (Version 1)
Quarter: 2018Q3

REPORT INFORMATION
  Report Type: Spontaneous
  Country: DE (occurrence: DE)
  Receive Date: 20180702
  Receipt Date: 20180702
  Transmission Date: 20181010
  Serious: Yes (Hospitalization)
  Sender: FDA-Public Use
  Company Number: PHHY2014DE185155

PATIENT
  Age: 51 Year
  Sex: Female
  Weight: 120 kg

DRUGS (10)
  1. CARBOPLATIN. [Suspect]
     Active Substance: CARBOPLATIN
     Indication: OVARIAN CANCER
     Dosage: 3036.75 MG, QW((AUC 5), LAST DOSE GIVEN PRIOR TO SAE WAS ON 13/JUN/2014)
     Route: 042
     Dates: start: 20140613
  2. PACLITAXEL. [Suspect]
     Active Substance: PACLITAXEL
     Indication: OVARIAN CANCER
     Dosage: 279.45 MG, Q3W(279.45??400.75 MG)
     Route: 042
     Dates: start: 20140722, end: 20141107
  3. BEVACIZUMAB. [Suspect]
     Active Substance: BEVACIZUMAB
     Indication: OVARIAN CANCER
     Dosage: 1590 MG, Q3W
     Route: 042
     Dates: start: 20140722
  4. XELEVIA [Concomitant]
     Active Substance: SITAGLIPTIN PHOSPHATE
     Indication: DIABETES MELLITUS
     Dosage: 50 MG, QD(DATE OF LAST DOSE PRIOR TO SAE 10/JUN/2014)
     Route: 048
  5. PACLITAXEL. [Suspect]
     Active Substance: PACLITAXEL
     Dosage: 400.75 MG, Q3W(LAST DOSE GIVEN PRIOR TO SAE WAS GIVEN ON 13/JUN/2014.)
     Route: 042
     Dates: start: 20140613
  6. PANTOPRAZOL [Concomitant]
     Active Substance: PANTOPRAZOLE SODIUM
     Indication: PROPHYLAXIS
     Dosage: 40 MG, QD
     Route: 048
  7. METFORMIN [Concomitant]
     Active Substance: METFORMIN HYDROCHLORIDE
     Indication: DIABETES MELLITUS
     Dosage: 500 MG, QD(DATE OF LAST DOSE PRIOR TO SAE 13/JUN/2014)
     Route: 048
  8. XIPAMID [Concomitant]
     Active Substance: XIPAMIDE
     Indication: PRODUCT USED FOR UNKNOWN INDICATION
     Dosage: 10 MG, UNK
     Route: 048
  9. CARBOPLATIN. [Suspect]
     Active Substance: CARBOPLATIN
     Dosage: UNK UNK, Q3W(1025?1145.85 MG)
     Route: 042
     Dates: start: 20140722, end: 20141107
  10. BEVACIZUMAB. [Suspect]
     Active Substance: BEVACIZUMAB
     Dosage: 1410 MG, Q3W
     Route: 042
     Dates: start: 20141006

REACTIONS (5)
  - Infection [Recovered/Resolved]
  - Dyspnoea [Recovering/Resolving]
  - Sepsis [Recovering/Resolving]
  - Thrombocytopenia [Recovered/Resolved]
  - Anaemia [Recovered/Resolved]

NARRATIVE: CASE EVENT DATE: 20140702
